FAERS Safety Report 18161195 (Version 1)
Quarter: 2020Q3

REPORT INFORMATION
  Report Type: Other
  Country: CN (occurrence: CN)
  Receive Date: 20200818
  Receipt Date: 20200818
  Transmission Date: 20201103
  Serious: Yes (Other)
  Sender: FDA-Public Use
  Company Number: CN-ROCHE-2308211

PATIENT

DRUGS (12)
  1. MYCOPHENOLATE MOFETIL. [Suspect]
     Active Substance: MYCOPHENOLATE MOFETIL
     Indication: IMMUNOGLOBULIN G4 RELATED DISEASE
     Dosage: 0.5?1.0 MG/KG BODY WEIGHT/DAY (30?60 MG/DAY)
     Route: 065
  2. CYCLOSPORINE A [Suspect]
     Active Substance: CYCLOSPORINE
     Indication: IMMUNOGLOBULIN G4 RELATED DISEASE
     Route: 065
  3. PREDNISONE. [Suspect]
     Active Substance: PREDNISONE
     Indication: IMMUNOGLOBULIN G4 RELATED DISEASE
     Route: 065
  4. MYCOPHENOLATE MOFETIL. [Suspect]
     Active Substance: MYCOPHENOLATE MOFETIL
     Dosage: 5 MG PER 2 WEEKS
     Route: 065
  5. LEFLUNOMIDE. [Suspect]
     Active Substance: LEFLUNOMIDE
     Indication: IMMUNOGLOBULIN G4 RELATED DISEASE
     Route: 065
  6. AZATHIOPRINE. [Suspect]
     Active Substance: AZATHIOPRINE
     Indication: IMMUNOGLOBULIN G4 RELATED DISEASE
     Route: 065
  7. CYCLOPHOSPHAMIDE. [Suspect]
     Active Substance: CYCLOPHOSPHAMIDE
     Dosage: INITIAL DOSE WAS 54.75 MG/DAY (ORAL, 50?100 MG/DAY).?MAINTAINED THE INITIAL DOSE FOR 3 MONTHS, AFTER
     Route: 048
  8. IGURATIMOD [Concomitant]
     Active Substance: IGURATIMOD
  9. MYCOPHENOLATE MOFETIL. [Suspect]
     Active Substance: MYCOPHENOLATE MOFETIL
     Dosage: 5?10 MG/DAY.
     Route: 065
  10. MYCOPHENOLATE MOFETIL. [Suspect]
     Active Substance: MYCOPHENOLATE MOFETIL
     Dosage: INITIAL DOSE WAS 1060 MG/DAY (1000?1500 MG/DAY)?MAINTAINED FOR 6 MONTHS AND DECREASED TO 500?1000 MG
     Route: 065
  11. CYCLOPHOSPHAMIDE. [Suspect]
     Active Substance: CYCLOPHOSPHAMIDE
     Indication: IMMUNOGLOBULIN G4 RELATED DISEASE
     Route: 065
  12. METHOTREXATE. [Suspect]
     Active Substance: METHOTREXATE
     Indication: IMMUNOGLOBULIN G4 RELATED DISEASE
     Route: 065

REACTIONS (8)
  - Pneumonia [Unknown]
  - Infection [Unknown]
  - Diabetes mellitus [Unknown]
  - Gastrointestinal disorder [Unknown]
  - Hepatic function abnormal [Unknown]
  - Leukopenia [Unknown]
  - Herpes zoster [Unknown]
  - Upper respiratory tract infection [Unknown]
